FAERS Safety Report 21469088 (Version 2)
Quarter: 2022Q4

REPORT INFORMATION
  Report Type: Report from Study
  Country: US (occurrence: US)
  Receive Date: 20221018
  Receipt Date: 20221025
  Transmission Date: 20230113
  Serious: Yes (Hospitalization, Other)
  Sender: FDA-Public Use
  Company Number: US-SAMOHPHARM-2022004913

PATIENT

DRUGS (11)
  1. CYSTADANE [Suspect]
     Active Substance: BETAINE
     Indication: Metabolic disorder
     Dosage: 2 SCOOPS, TID
     Route: 065
     Dates: start: 2014
  2. CYSTADANE [Suspect]
     Active Substance: BETAINE
     Indication: Methylenetetrahydrofolate reductase deficiency
     Dosage: 5 SCOOPS, TID
  3. CYSTADANE [Suspect]
     Active Substance: BETAINE
     Dosage: 3 GRAM, TID
     Route: 048
     Dates: end: 20220929
  4. CYSTADANE [Suspect]
     Active Substance: BETAINE
     Dosage: 5 GRAM, TID (FOR 1 DAY)
     Route: 048
     Dates: start: 20220930, end: 20220930
  5. CYSTADANE [Suspect]
     Active Substance: BETAINE
     Dosage: 3 GRAM, TID
     Route: 048
     Dates: start: 20221001
  6. VITAMIN D NOS [Concomitant]
     Active Substance: VITAMIN D NOS
     Indication: Product used for unknown indication
     Dosage: UNK
  7. RIBOFLAVIN [Concomitant]
     Active Substance: RIBOFLAVIN
     Indication: Product used for unknown indication
     Dosage: UNK
  8. MELATONIN [Concomitant]
     Active Substance: MELATONIN
     Indication: Product used for unknown indication
     Dosage: UNK
  9. HYDROXOCOBALAMIN [Concomitant]
     Active Substance: HYDROXOCOBALAMIN
     Indication: Product used for unknown indication
     Dosage: UNK
  10. FOLIC ACID [Concomitant]
     Active Substance: FOLIC ACID
     Indication: Product used for unknown indication
     Dosage: UNK
  11. LEUCOVORIN [Concomitant]
     Active Substance: LEUCOVORIN
     Indication: Methylenetetrahydrofolate reductase deficiency
     Dosage: 10 MILLIGRAM

REACTIONS (8)
  - Seizure [Unknown]
  - Pseudostroke [Recovered/Resolved]
  - Blood homocysteine increased [Unknown]
  - Dehydration [Unknown]
  - Off label use [Recovered/Resolved]
  - Off label use [Recovered/Resolved]
  - Off label use [Recovered/Resolved]
  - Product dose omission issue [Recovered/Resolved]

NARRATIVE: CASE EVENT DATE: 20140101
